FAERS Safety Report 4693856-9 (Version None)
Quarter: 2005Q2

REPORT INFORMATION
  Report Type: 
  Country: None (occurrence: None)
  Receive Date: 20050615
  Receipt Date: 20050602
  Transmission Date: 20051028
  Serious: Yes (Hospitalization, Other)
  Sender: FDA-Public Use
  Company Number: 2005076691

PATIENT
  Age: 53 Year
  Sex: Male
  Weight: 65.7716 kg

DRUGS (1)
  1. CELEBREX [Suspect]
     Indication: ILL-DEFINED DISORDER
     Dates: start: 19970101, end: 19980101

REACTIONS (2)
  - ARTERIAL OCCLUSIVE DISEASE [None]
  - PAIN IN JAW [None]
